FAERS Safety Report 7686770-8 (Version None)
Quarter: 2011Q3

REPORT INFORMATION
  Report Type: 
  Country: None (occurrence: None)
  Receive Date: 20110816
  Receipt Date: 20110810
  Transmission Date: 20111222
  Serious: Yes (Other)
  Sender: FDA-Public Use
  Company Number: US-SANOFI-AVENTIS-2011SA043503

PATIENT
  Age: 82 Year
  Sex: Female
  Weight: 63.5 kg

DRUGS (22)
  1. MULTAQ [Suspect]
     Route: 048
     Dates: start: 20100817, end: 20110307
  2. ALL OTHER THERAPEUTIC PRODUCTS [Concomitant]
     Dosage: DOSE:25000 UNIT(S)
  3. VITAMIN D [Concomitant]
  4. MULTAQ [Suspect]
     Indication: ATRIAL FIBRILLATION
     Route: 048
     Dates: start: 20100817, end: 20110307
  5. METOPROLOL TARTRATE [Concomitant]
     Dates: start: 19960101
  6. ASPIRIN [Concomitant]
     Dates: start: 19960101
  7. TEMAZEPAM [Concomitant]
     Indication: SLEEP DISORDER
     Dates: start: 19960101
  8. LUTEIN [Concomitant]
  9. COQ10 [Concomitant]
  10. LOVAZA [Concomitant]
  11. FOSINOPRIL SODIUM [Concomitant]
     Indication: HYPERTENSION
     Dates: start: 19960101
  12. OMEPRAZOLE [Concomitant]
  13. MAGNESIUM [Concomitant]
  14. ASCORBIC ACID [Concomitant]
  15. LEVOTHYROXINE SODIUM [Concomitant]
     Dates: start: 20090101
  16. VITAMIN B6 [Concomitant]
  17. MULTAQ [Suspect]
     Route: 048
     Dates: start: 20100817, end: 20110307
  18. AMIODARONE HCL [Suspect]
     Route: 051
     Dates: start: 20100609, end: 20100617
  19. VITAMIN B-12 [Concomitant]
  20. AMIODARONE HCL [Suspect]
     Route: 065
     Dates: start: 20090814, end: 20100609
  21. LASIX [Concomitant]
     Dates: start: 19960101
  22. KLOR-CON [Concomitant]
     Dates: start: 19960101

REACTIONS (14)
  - DYSPHONIA [None]
  - SUICIDAL IDEATION [None]
  - SKIN DISCOLOURATION [None]
  - GLOSSITIS [None]
  - CONDITION AGGRAVATED [None]
  - DRUG INEFFECTIVE [None]
  - GASTROINTESTINAL DISORDER [None]
  - ALOPECIA [None]
  - FEELING ABNORMAL [None]
  - EYE HAEMORRHAGE [None]
  - LIVER FUNCTION TEST ABNORMAL [None]
  - GOITRE [None]
  - EMOTIONAL DISORDER [None]
  - DECREASED APPETITE [None]
